FAERS Safety Report 11925583 (Version 1)
Quarter: 2016Q1

REPORT INFORMATION
  Report Type: Spontaneous
  Country: FI (occurrence: FI)
  Receive Date: 20160118
  Receipt Date: 20160118
  Transmission Date: 20160526
  Serious: Yes (Other)
  Sender: FDA-Public Use
  Company Number: FI-MUNDIPHARMA DS AND PHARMACOVIGILANCE-GBR-2015-0032954

PATIENT
  Age: 82 Year
  Sex: Female

DRUGS (4)
  1. OXYNORM KAPSELI, KOVA [Suspect]
     Active Substance: OXYCODONE HYDROCHLORIDE
     Indication: NEOPLASM MALIGNANT
     Dosage: UNK
     Route: 065
  2. LAXOBERON [Concomitant]
     Active Substance: SODIUM PICOSULFATE
  3. DUROGESIC [Concomitant]
     Active Substance: FENTANYL
  4. LEVOLAC [Concomitant]
     Active Substance: LACTULOSE

REACTIONS (3)
  - Constipation [Unknown]
  - Intestinal obstruction [Unknown]
  - Vomiting [Unknown]
